FAERS Safety Report 7572303-3 (Version None)
Quarter: 2011Q2

REPORT INFORMATION
  Report Type: 
  Country: None (occurrence: None)
  Receive Date: 20110624
  Receipt Date: 20110614
  Transmission Date: 20111010
  Serious: Yes (Other)
  Sender: FDA-Public Use
  Company Number: PHHY2011US52672

PATIENT
  Sex: Female

DRUGS (2)
  1. ASPIRIN [Concomitant]
     Dosage: UNK
  2. VIVELLE-DOT [Suspect]
     Dosage: UNK
     Route: 062

REACTIONS (6)
  - CARDIAC DISORDER [None]
  - FEELING ABNORMAL [None]
  - CERVIX NEOPLASM [None]
  - ABORTION SPONTANEOUS [None]
  - CANDIDIASIS [None]
  - SKIN CANCER [None]
